FAERS Safety Report 12543515 (Version 1)
Quarter: 2016Q3

REPORT INFORMATION
  Report Type: Spontaneous
  Country: US (occurrence: US)
  Receive Date: 20160711
  Receipt Date: 20160711
  Transmission Date: 20161109
  Serious: No
  Sender: FDA-Public Use
  Company Number: US-JAZZ-2016-US-000108

PATIENT
  Age: 40 Year
  Sex: Male
  Weight: 83.9 kg

DRUGS (3)
  1. XYREM [Suspect]
     Active Substance: SODIUM OXYBATE
     Indication: NARCOLEPSY
  2. PROVIGIL [Concomitant]
     Active Substance: MODAFINIL
     Indication: PRODUCT USED FOR UNKNOWN INDICATION
     Dosage: UNK
     Dates: start: 20151217
  3. XYREM [Suspect]
     Active Substance: SODIUM OXYBATE
     Indication: CATAPLEXY
     Dosage: 2.25 G, BID
     Route: 048
     Dates: start: 20160101

REACTIONS (6)
  - Initial insomnia [Recovered/Resolved]
  - Cataplexy [Recovering/Resolving]
  - Abnormal dreams [Recovered/Resolved]
  - Somnolence [Recovering/Resolving]
  - Fatigue [Recovering/Resolving]
  - Snoring [Unknown]

NARRATIVE: CASE EVENT DATE: 201601
